FAERS Safety Report 10314687 (Version 1)
Quarter: 2014Q3

REPORT INFORMATION
  Report Type: Spontaneous
  Country: DE (occurrence: DE)
  Receive Date: 20140718
  Receipt Date: 20140718
  Transmission Date: 20150326
  Serious: Yes (Hospitalization)
  Sender: FDA-Public Use
  Company Number: DE-ABBVIE-14P-062-1261284-00

PATIENT
  Age: 45 Year
  Sex: Male

DRUGS (5)
  1. VALPROIC ACID. [Suspect]
     Active Substance: VALPROIC ACID
     Route: 048
     Dates: start: 20140523, end: 20140527
  2. CLOPENTHIXOL HYDROCHLORIDE [Concomitant]
     Active Substance: CLOPENTHIXOL HYDROCHLORIDE
     Indication: PRODUCT USED FOR UNKNOWN INDICATION
  3. LORAZEPAM. [Concomitant]
     Active Substance: LORAZEPAM
     Indication: PRODUCT USED FOR UNKNOWN INDICATION
  4. VALPROIC ACID. [Suspect]
     Active Substance: VALPROIC ACID
     Indication: CONDUCT DISORDER
     Route: 048
     Dates: start: 20140522, end: 20140522
  5. VALPROIC ACID. [Suspect]
     Active Substance: VALPROIC ACID
     Route: 048
     Dates: start: 20140530, end: 20140603

REACTIONS (3)
  - Apraxia [Recovered/Resolved]
  - Echolalia [Recovered/Resolved]
  - Activities of daily living impaired [Recovered/Resolved]

NARRATIVE: CASE EVENT DATE: 20140527
